FAERS Safety Report 9869011 (Version 1)
Quarter: 2014Q1

REPORT INFORMATION
  Report Type: Report from Study
  Country: US (occurrence: US)
  Receive Date: 20140205
  Receipt Date: 20140205
  Transmission Date: 20141002
  Serious: Yes (Death)
  Sender: FDA-Public Use
  Company Number: US-ROCHE-1321041

PATIENT
  Age: 57 Year
  Sex: Male
  Weight: 59.02 kg

DRUGS (11)
  1. AVASTIN [Suspect]
     Indication: COLON CANCER
     Dosage: 10 MG/KG
     Route: 042
     Dates: start: 20120327
  2. AVASTIN [Suspect]
     Indication: HEPATIC CANCER
  3. FLUOROURACIL [Concomitant]
     Route: 042
  4. FLUOROURACIL [Concomitant]
     Dosage: INFUSION TO RUN OVER 46 HOURS
     Route: 042
  5. LEUCOVORIN [Concomitant]
     Route: 042
  6. EMEND [Concomitant]
     Dosage: PREMED
     Route: 042
  7. ELOXATIN [Concomitant]
     Route: 042
  8. ZOFRAN [Concomitant]
     Dosage: PREMED
     Route: 042
  9. COMPAZINE [Concomitant]
     Dosage: PRN - POST INFUSION MEDICATION
     Route: 048
  10. ATIVAN [Concomitant]
     Indication: ANXIETY
     Dosage: PRN, POST INFUSION MEDICATION
     Route: 048
  11. IMODIUM [Concomitant]
     Dosage: POST INFUSION MEDICATION
     Route: 065

REACTIONS (2)
  - Death [Fatal]
  - Nausea [Unknown]
